FAERS Safety Report 6060114-X (Version None)
Quarter: 2009Q1

REPORT INFORMATION
  Report Type: 
  Country: None (occurrence: None)
  Receive Date: 20090128
  Receipt Date: 20090121
  Transmission Date: 20090719
  Serious: Yes (Life-Threatening)
  Sender: FDA-Public Use
  Company Number: CERZ-1000442

PATIENT
  Age: 37 Year
  Sex: Female

DRUGS (7)
  1. CEREZYME [Suspect]
     Indication: GAUCHER'S DISEASE
     Dosage: 3200 U, Q2W, INTRAVENOUS; 1600 U, Q2W, INTRAVENOUS
     Route: 042
     Dates: start: 20020101
  2. CARVEDILOL [Concomitant]
  3. LOSARTAN POTASSIUM [Concomitant]
  4. METHYLDOPA [Concomitant]
  5. ENALAPRIL MALEATE [Concomitant]
  6. FUROSEMIDE (FUROSEMIDE) [Concomitant]
  7. MONOCORDIL (ISOSORBIDE MONONITRATE) [Concomitant]

REACTIONS (3)
  - ACUTE PULMONARY OEDEMA [None]
  - CARDIAC FAILURE CHRONIC [None]
  - HYPERTENSIVE CRISIS [None]
